FAERS Safety Report 9842198 (Version 2)
Quarter: 2014Q2

REPORT INFORMATION
  Report Type: Spontaneous
  Country: US (occurrence: US)
  Receive Date: 20140124
  Receipt Date: 20140403
  Transmission Date: 20141212
  Serious: Yes (Other)
  Sender: FDA-Public Use
  Company Number: US-GLAXOSMITHKLINE-A1056933A

PATIENT
  Age: 70 Year
  Sex: Male
  Weight: 51.4 kg

DRUGS (1)
  1. ADVAIR [Suspect]
     Indication: CHRONIC OBSTRUCTIVE PULMONARY DISEASE
     Dosage: 1PUFF TWICE PER DAY
     Route: 055
     Dates: start: 20120510, end: 20120712

REACTIONS (2)
  - Oesophageal candidiasis [Recovered/Resolved]
  - Oropharyngeal candidiasis [Recovered/Resolved]
